FAERS Safety Report 16234120 (Version 2)
Quarter: 2019Q2

REPORT INFORMATION
  Report Type: Report from Study
  Country: CH (occurrence: CH)
  Receive Date: 20190424
  Receipt Date: 20190508
  Transmission Date: 20190711
  Serious: Yes (Hospitalization)
  Sender: FDA-Public Use
  Company Number: CH-TEVA-2019-CH-1042922

PATIENT
  Sex: Male
  Weight: 81 kg

DRUGS (2)
  1. RIBUMUSTIN (BENDAMUSTINE HYDROCHLORIDE) [Suspect]
     Active Substance: BENDAMUSTINE HYDROCHLORIDE
     Indication: LYMPHOMA
     Dosage: 434 (UNIT NOT PROVIDED), CYCLIC
     Route: 042
     Dates: start: 20190204, end: 20190205
  2. MELPHALAN. [Concomitant]
     Active Substance: MELPHALAN
     Indication: CHEMOTHERAPY
     Dosage: 217 UNIT NOT PROVIDED, CYCLIC
     Route: 042
     Dates: start: 20190206, end: 20190207

REACTIONS (4)
  - Weight decreased [Recovered/Resolved]
  - Colitis [Recovered/Resolved]
  - Decreased appetite [Recovered/Resolved]
  - Physical deconditioning [Recovered/Resolved]

NARRATIVE: CASE EVENT DATE: 20190305
